FAERS Safety Report 19999187 (Version 2)
Quarter: 2021Q4

REPORT INFORMATION
  Report Type: Spontaneous
  Country: US (occurrence: US)
  Receive Date: 20211027
  Receipt Date: 20211116
  Transmission Date: 20220304
  Serious: No
  Sender: FDA-Public Use
  Company Number: US-UNITED THERAPEUTICS-UNT-2021-021550

PATIENT
  Age: 64 Year
  Sex: Female
  Weight: 68.481 kg

DRUGS (3)
  1. TYVASO [Suspect]
     Active Substance: TREPROSTINIL
     Indication: Pulmonary arterial hypertension
     Dosage: UNK
     Dates: start: 20201020
  2. TYVASO [Suspect]
     Active Substance: TREPROSTINIL
     Dosage: 18-54 ?G, QID
  3. AMLODIPINE [Concomitant]
     Active Substance: AMLODIPINE BESYLATE
     Indication: Product used for unknown indication
     Dosage: UNK
     Route: 065

REACTIONS (2)
  - Malaise [Unknown]
  - COVID-19 [Unknown]

NARRATIVE: CASE EVENT DATE: 20211001
